FAERS Safety Report 13205619 (Version 6)
Quarter: 2017Q2

REPORT INFORMATION
  Report Type: Spontaneous
  Country: US (occurrence: US)
  Receive Date: 20170209
  Receipt Date: 20170623
  Transmission Date: 20170830
  Serious: Yes (Hospitalization, Other)
  Sender: FDA-Public Use
  Company Number: US-PFIZER INC-2017047239

PATIENT
  Age: 62 Year
  Sex: Female
  Weight: 97 kg

DRUGS (70)
  1. RAPAMUNE [Suspect]
     Active Substance: SIROLIMUS
     Dosage: 0.5 MG, DAILY
     Route: 048
  2. LORAZEPAM. [Concomitant]
     Active Substance: LORAZEPAM
     Dosage: 0.5 MG, AS NEEDED [AT BEDTIME PRN]
     Route: 048
  3. PREDNISONE. [Concomitant]
     Active Substance: PREDNISONE
     Dosage: 70 MG, ALTERNATE DAY
     Route: 048
  4. PREDNISONE. [Concomitant]
     Active Substance: PREDNISONE
     Dosage: 80 MG, ALTERNATE DAY
     Dates: end: 20161219
  5. TACROLIMUS. [Concomitant]
     Active Substance: TACROLIMUS
     Dosage: 1.5 MG, UNK, (1 MG AM TO 0.5 MG PM )
     Route: 048
     Dates: start: 20160728, end: 20160803
  6. TACROLIMUS. [Concomitant]
     Active Substance: TACROLIMUS
     Dosage: 0.5 MG, 1X/DAY, (0.5 MG AM )
     Dates: start: 20160811, end: 20160816
  7. EVOXAC [Concomitant]
     Active Substance: CEVIMELINE HYDROCHLORIDE
     Dosage: 30 MG, UNK, (TAKE AS DIRECTED)
     Route: 048
  8. ZITHROMAX [Concomitant]
     Active Substance: AZITHROMYCIN DIHYDRATE
     Dosage: 250 MG, UNK, (AS DIRECTED)
     Route: 048
  9. DIFLUCAN [Concomitant]
     Active Substance: FLUCONAZOLE
     Dosage: 100 MG, DAILY (1 IN 1 D)
     Route: 048
  10. PREDNISONE. [Concomitant]
     Active Substance: PREDNISONE
     Dosage: 50 MG, ALTERNATE DAY
     Dates: start: 20170324
  11. TACROLIMUS. [Concomitant]
     Active Substance: TACROLIMUS
     Dosage: 2 MG, 2X/DAY 1.5 MG AM AND 1.5 MG PM
     Route: 048
     Dates: start: 20160714, end: 20160720
  12. CYCLOSPORINE. [Concomitant]
     Active Substance: CYCLOSPORINE
     Indication: PROPHYLAXIS AGAINST GRAFT VERSUS HOST DISEASE
  13. RAPAMUNE [Suspect]
     Active Substance: SIROLIMUS
     Indication: GRAFT VERSUS HOST DISEASE
     Dosage: 1.5 MG, DAILY (0.5 MG TABLET, (1.5 MG, 1 IN 1 D)
     Route: 048
     Dates: start: 2016
  14. RAPAMUNE [Suspect]
     Active Substance: SIROLIMUS
     Dosage: 1 MG, DAILY
     Route: 048
     Dates: start: 201611
  15. ATORVASTATIN CALCIUM. [Concomitant]
     Active Substance: ATORVASTATIN CALCIUM
     Dosage: 40 MG, DAILY
     Route: 048
  16. DEXAMETHASONE. [Concomitant]
     Active Substance: DEXAMETHASONE
     Dosage: 0.5 MG/ML, (AS DIRECTED)
     Route: 048
  17. LORAZEPAM. [Concomitant]
     Active Substance: LORAZEPAM
     Dosage: AS NEEDED (1-2 TABLETS Q 4 HOURS)
     Route: 048
  18. MAGNESIUM OXIDE. [Concomitant]
     Active Substance: MAGNESIUM OXIDE
     Dosage: 800 MG, 2X/DAY (2 TABLET 400 MG, 2 IN 1 D)
     Route: 048
  19. TACROLIMUS. [Concomitant]
     Active Substance: TACROLIMUS
     Dosage: 1 MG, 2X/DAY 0.5MG AM TO 0.5MG PM
     Route: 048
     Dates: start: 20160804, end: 20160810
  20. BACTRIM [Concomitant]
     Active Substance: SULFAMETHOXAZOLE\TRIMETHOPRIM
     Dosage: UNK, 2X/DAY
     Route: 048
  21. BACTRIM [Concomitant]
     Active Substance: SULFAMETHOXAZOLE\TRIMETHOPRIM
     Dosage: UNK, (800) TAKE AS DIRECTED
     Route: 048
  22. DIAZEPAM. [Concomitant]
     Active Substance: DIAZEPAM
     Dosage: 6 MG, AS NEEDED (T.I.D, PRN)
     Route: 048
  23. AZITHROMYCIN ANHYDROUS. [Concomitant]
     Active Substance: AZITHROMYCIN ANHYDROUS
     Dosage: 250 MG, UNK
     Route: 048
  24. GEMFIBROZIL. [Concomitant]
     Active Substance: GEMFIBROZIL
     Dosage: 600 MG, 2X/DAY
     Route: 048
     Dates: start: 201606
  25. PREDNISONE. [Concomitant]
     Active Substance: PREDNISONE
     Dosage: 80 MG, DAILY
     Route: 048
  26. VANCOMYCIN [Concomitant]
     Active Substance: VANCOMYCIN
     Dosage: UNK
  27. EVOXAC [Concomitant]
     Active Substance: CEVIMELINE HYDROCHLORIDE
     Dosage: 30 MG, 3X/DAY
     Route: 048
  28. CALCIUM CITRATE [Concomitant]
     Active Substance: CALCIUM CITRATE
     Dosage: UNK, DAILY, (630-500 MG - UNITS)
     Route: 048
  29. SYSTANE (HYPROMELLOSE 2910 (4000 MPA.S)) [Concomitant]
     Active Substance: HYPROMELLOSE 2910 (4000 MPA.S)
     Dosage: UNK, 4X/DAY
     Route: 047
  30. CYMBALTA [Concomitant]
     Active Substance: DULOXETINE HYDROCHLORIDE
     Dosage: 60 MG, DAILY
     Route: 048
  31. CYMBALTA [Concomitant]
     Active Substance: DULOXETINE HYDROCHLORIDE
     Dosage: 90 MG, DAILY
     Route: 048
  32. ENOXAPARIN SODIUM. [Concomitant]
     Active Substance: ENOXAPARIN SODIUM
     Indication: THROMBOPHLEBITIS MIGRANS
     Dosage: UNK (40 MG/0.4ML)
     Route: 058
     Dates: start: 201606
  33. GABAPENTIN. [Concomitant]
     Active Substance: GABAPENTIN
     Dosage: 600 MG, 2X/DAY (1 TABLET (600 MG, 2 IN 1 D)
     Route: 048
  34. SULFAMETHOXAZOLE AND TRIMETHOPRIM [Concomitant]
     Active Substance: SULFAMETHOXAZOLE\TRIMETHOPRIM
     Dosage: 1 DF, DAILY (SULFAMETHOXAZOLE 800 MG/ TRIMETHOPRIM 160 MG)
     Route: 048
  35. TACROLIMUS. [Concomitant]
     Active Substance: TACROLIMUS
     Dosage: 3 MG, 2X/DAY, (3 MG AM AND 3 MG PM)
     Route: 048
     Dates: start: 20160616, end: 20160622
  36. TACROLIMUS. [Concomitant]
     Active Substance: TACROLIMUS
     Dosage: 2 MG, 2X/DAY, (2 MG AM AND 2 MG PM)
     Route: 048
     Dates: start: 20160707, end: 20160713
  37. TACROLIMUS. [Concomitant]
     Active Substance: TACROLIMUS
     Dosage: 1.5 MG, 2X/DAY, (1.5 MG AM AND 1.5 MG PM)
     Route: 048
     Dates: start: 20160714, end: 20160720
  38. VALTREX [Concomitant]
     Active Substance: VALACYCLOVIR HYDROCHLORIDE
     Dosage: 500 MG, 2X/DAY
     Route: 048
  39. CEFEPIME [Concomitant]
     Active Substance: CEFEPIME HYDROCHLORIDE
     Dosage: 2 G, 4X/DAY
     Route: 042
  40. SOLU-MEDROL [Concomitant]
     Active Substance: METHYLPREDNISOLONE SODIUM SUCCINATE
     Dosage: 80 MG, 2X/DAY
  41. HYDROCHLOROTHIAZIDE. [Concomitant]
     Active Substance: HYDROCHLOROTHIAZIDE
     Dosage: 25 MG, DAILY
     Route: 048
  42. ZITHROMAX [Concomitant]
     Active Substance: AZITHROMYCIN DIHYDRATE
     Dosage: 250 MG, UNK (THREE TIMES A WEEK)
     Route: 048
  43. CLOBETASOL PROPIONATE. [Concomitant]
     Active Substance: CLOBETASOL PROPIONATE
     Dosage: 0.05 %
     Route: 061
  44. IMATINIB MESYLATE. [Concomitant]
     Active Substance: IMATINIB MESYLATE
     Dosage: 100 MG, DAILY
     Route: 048
  45. IMATINIB MESYLATE. [Concomitant]
     Active Substance: IMATINIB MESYLATE
     Dosage: UNK
     Dates: start: 20161004
  46. OMEPRAZOLE. [Concomitant]
     Active Substance: OMEPRAZOLE
     Dosage: 40 MG, DAILY (1 IN 1 D)
     Route: 048
  47. TACROLIMUS. [Concomitant]
     Active Substance: TACROLIMUS
     Dosage: UNK,
     Route: 048
  48. TACROLIMUS. [Concomitant]
     Active Substance: TACROLIMUS
     Dosage: 2.5 MG, 2X/DAY 1 MG AM TO 1.5MG PM
     Route: 048
     Dates: start: 20160721, end: 20160727
  49. DIAZEPAM. [Concomitant]
     Active Substance: DIAZEPAM
     Dosage: 5 MG, AS NEEDED (TID)
     Route: 048
  50. ZOSYN [Concomitant]
     Active Substance: PIPERACILLIN SODIUM\TAZOBACTAM SODIUM
     Dosage: UNK
  51. ATORVASTATIN CALCIUM. [Concomitant]
     Active Substance: ATORVASTATIN CALCIUM
     Dosage: 40 MG, DAILY
     Route: 048
  52. PREDNISONE. [Concomitant]
     Active Substance: PREDNISONE
     Dosage: 70 MG, ALTERNATE DAY
     Dates: start: 20161221
  53. TACROLIMUS. [Concomitant]
     Active Substance: TACROLIMUS
     Dosage: 0.5 MG, 1X/DAY 0.5 MG AM TO 0 MG PM
     Route: 048
     Dates: start: 20160811, end: 20160816
  54. TACROLIMUS. [Concomitant]
     Active Substance: TACROLIMUS
     Dosage: 5.5 MG, UNK, (2.5 MG AM AND 3 MG PM )
     Route: 048
     Dates: start: 20160623, end: 20160629
  55. TACROLIMUS. [Concomitant]
     Active Substance: TACROLIMUS
     Dosage: 0.5 MG, 2X/DAY
     Route: 048
     Dates: start: 20160804, end: 20160810
  56. METOPROLOL TARTRATE. [Concomitant]
     Active Substance: METOPROLOL TARTRATE
     Dosage: 100 MG, 2X/DAY (2 IN 1 D)
     Route: 048
  57. HYDROCORTISONE. [Concomitant]
     Active Substance: HYDROCORTISONE
     Dosage: 2.5 % (TAKE AS DIRECTED)
     Route: 061
  58. DAPSONE. [Concomitant]
     Active Substance: DAPSONE
     Indication: ANTIFUNGAL PROPHYLAXIS
     Dosage: 50 MG, 2X/DAY
     Route: 048
     Dates: end: 20161002
  59. GABAPENTIN. [Concomitant]
     Active Substance: GABAPENTIN
     Dosage: 600 MG, 3X/DAY (2 CAPSULES 300 MG, 3 IN 1 D)
     Route: 048
  60. TACROLIMUS. [Concomitant]
     Active Substance: TACROLIMUS
     Dosage: 1.5 MG, UNK
     Route: 048
     Dates: start: 20160728, end: 20160803
  61. TACROLIMUS. [Concomitant]
     Active Substance: TACROLIMUS
     Dosage: 4.5 MG, UNK, (2.5 MG AM AND 2 MG PM )
     Route: 048
     Dates: start: 20160630, end: 20160706
  62. TACROLIMUS. [Concomitant]
     Active Substance: TACROLIMUS
     Dosage: 2.5 MG, UNK, (1 MG AM TO 1.5 MG PM )
     Route: 048
     Dates: start: 20160721, end: 20160727
  63. TRIAMCINOLONE ACETONIDE. [Concomitant]
     Active Substance: TRIAMCINOLONE ACETONIDE
     Indication: DRY SKIN
     Dosage: 0.1%, (TAKE AS DIRECTED )
     Route: 061
  64. URSODIOL. [Concomitant]
     Active Substance: URSODIOL
     Dosage: 600 MG, 2X/DAY, (TILL DAY 180)
     Route: 048
     Dates: start: 20170316
  65. VORICONAZOLE. [Concomitant]
     Active Substance: VORICONAZOLE
     Dosage: 300 MG, 2X/DAY (1.5 TABLET (200 MG, 1 IN 12 HR)
     Route: 048
  66. MYCOPHENOLATE MOFETIL. [Concomitant]
     Active Substance: MYCOPHENOLATE MOFETIL
     Indication: PROPHYLAXIS AGAINST GRAFT VERSUS HOST DISEASE
     Dosage: UNK
     Dates: end: 20160421
  67. CHOLECALCIFEROL [Concomitant]
     Active Substance: CHOLECALCIFEROL
     Dosage: 2000 IU, DAILY
     Route: 048
  68. LIPITOR [Concomitant]
     Active Substance: ATORVASTATIN CALCIUM
     Dosage: 40 MG, DAILY
     Route: 048
  69. RAPAMUNE [Suspect]
     Active Substance: SIROLIMUS
     Indication: PROPHYLAXIS AGAINST GRAFT VERSUS HOST DISEASE
     Dosage: 1.5 MG, DAILY
     Route: 048
     Dates: start: 2016
  70. RAPAMUNE [Suspect]
     Active Substance: SIROLIMUS
     Dosage: 1 MG, DAILY
     Route: 048
     Dates: start: 20160817, end: 20160913

REACTIONS (27)
  - Sleep apnoea syndrome [Unknown]
  - Head injury [Unknown]
  - Graft versus host disease [Recovered/Resolved]
  - Osteopenia [Unknown]
  - Pyrexia [Unknown]
  - Visual impairment [Unknown]
  - Diarrhoea [Recovered/Resolved]
  - Product use in unapproved indication [Unknown]
  - Diplopia [Not Recovered/Not Resolved]
  - Tremor [Unknown]
  - Muscle spasms [Unknown]
  - Lacrimation increased [Unknown]
  - Dry eye [Unknown]
  - Peripheral swelling [Unknown]
  - Dehydration [Unknown]
  - Hyperlipidaemia [Unknown]
  - Obstructive airways disorder [Unknown]
  - Restless legs syndrome [Unknown]
  - Fall [Unknown]
  - Lichenification [Not Recovered/Not Resolved]
  - Pulmonary mass [Recovering/Resolving]
  - Skin abrasion [Unknown]
  - Oral candidiasis [Unknown]
  - Contusion [Unknown]
  - Leukocytosis [Unknown]
  - Dry mouth [Not Recovered/Not Resolved]
  - Dry skin [Unknown]

NARRATIVE: CASE EVENT DATE: 201606
